FAERS Safety Report 8900988 (Version 5)
Quarter: 2013Q2

REPORT INFORMATION
  Report Type: Spontaneous
  Country: US (occurrence: US)
  Receive Date: 20121109
  Receipt Date: 20130417
  Transmission Date: 20140414
  Serious: Yes (Hospitalization, Disabling, Other)
  Sender: FDA-Public Use
  Company Number: US-009507513-1203USA00029

PATIENT
  Sex: Female

DRUGS (3)
  1. FOSAMAX [Suspect]
     Indication: OSTEOPOROSIS
     Dosage: 10 MG, QD
     Route: 048
     Dates: start: 1995
  2. FOSAMAX [Suspect]
     Dosage: 70 MG, QW
     Route: 048
  3. ALENDRONATE SODIUM [Suspect]
     Indication: OSTEOPOROSIS
     Dosage: 70 MG, QW
     Route: 048
     Dates: start: 200903, end: 200909

REACTIONS (15)
  - Intramedullary rod insertion [Not Recovered/Not Resolved]
  - Osteoporosis [Not Recovered/Not Resolved]
  - Lung neoplasm malignant [Unknown]
  - Pneumonectomy [Unknown]
  - Pneumonectomy [Unknown]
  - Femur fracture [Not Recovered/Not Resolved]
  - Femur fracture [Not Recovered/Not Resolved]
  - Rib fracture [Recovered/Resolved]
  - Fall [Unknown]
  - Hypercholesterolaemia [Unknown]
  - Fall [Unknown]
  - Chest pain [Not Recovered/Not Resolved]
  - Rib fracture [Unknown]
  - Pain [Not Recovered/Not Resolved]
  - Pain in extremity [Unknown]
